FAERS Safety Report 23458163 (Version 1)
Quarter: 2024Q1

REPORT INFORMATION
  Report Type: Spontaneous
  Country: US (occurrence: US)
  Receive Date: 20240130
  Receipt Date: 20240130
  Transmission Date: 20240410
  Serious: No
  Sender: FDA-Public Use
  Company Number: US-PFIZER INC-202400027882

PATIENT
  Age: 73 Year
  Sex: Female

DRUGS (1)
  1. IBRANCE [Suspect]
     Active Substance: PALBOCICLIB
     Indication: Breast cancer
     Dosage: 125 MG DAILY FOR 21 DAYS THEN OFF FOR 7 DAYS
     Dates: start: 20240116

REACTIONS (2)
  - Dizziness [Not Recovered/Not Resolved]
  - Breast discharge [Unknown]
